FAERS Safety Report 6437722-7 (Version None)
Quarter: 2009Q4

REPORT INFORMATION
  Report Type: 
  Country: None (occurrence: None)
  Receive Date: 20091112
  Receipt Date: 20091103
  Transmission Date: 20100525
  Serious: Yes (Other)
  Sender: FDA-Public Use
  Company Number: US-JNJCH-2009029226

PATIENT
  Age: 53 Year
  Sex: Female
  Weight: 83.9 kg

DRUGS (2)
  1. ARTHRITIS FORMULA BENGAY [Suspect]
     Indication: DRUG USE FOR UNKNOWN INDICATION
     Dosage: TEXT:^ONE DAB^ ONCE
     Route: 061
     Dates: start: 20091102, end: 20091102
  2. LISINOPRIL [Concomitant]
     Indication: DRUG USE FOR UNKNOWN INDICATION
     Dosage: TEXT:10 MG UNSPECIFIED
     Route: 065

REACTIONS (3)
  - BLISTER [None]
  - ERYTHEMA [None]
  - SKIN WRINKLING [None]
